FAERS Safety Report 8244462-0 (Version None)
Quarter: 2012Q1

REPORT INFORMATION
  Report Type: 
  Country: None (occurrence: None)
  Receive Date: 20120329
  Receipt Date: 20120321
  Transmission Date: 20120608
  Serious: Yes (Hospitalization)
  Sender: FDA-Public Use
  Company Number: US-BAYER-2012-028768

PATIENT
  Age: 19 Year
  Sex: Female

DRUGS (11)
  1. LORAZEPAM [Concomitant]
     Indication: SCHIZOAFFECTIVE DISORDER
     Dosage: 2 MG, DAILY
  2. YASMIN [Suspect]
     Indication: CONTRACEPTION
  3. SEROQUEL [Concomitant]
     Indication: SCHIZOAFFECTIVE DISORDER
     Dosage: 15 MG, ONE AND A HALF TABS DAILY
  4. TRIFLUOPERAZINE HCL [Concomitant]
  5. STELAZINE [Concomitant]
     Indication: SCHIZOAFFECTIVE DISORDER
     Dosage: 14 MG, DAILY
  6. YASMIN [Suspect]
     Indication: MENSTRUATION IRREGULAR
  7. COGENTIN [Concomitant]
     Indication: SCHIZOAFFECTIVE DISORDER
     Dosage: 1 MG, DAILY
  8. VIOXX [Concomitant]
     Indication: PAIN IN EXTREMITY
  9. PREVACID [Concomitant]
  10. TYLENOL [Concomitant]
     Dosage: 1500 MG, PRN
  11. VICODIN [Concomitant]

REACTIONS (2)
  - PULMONARY EMBOLISM [None]
  - DEEP VEIN THROMBOSIS [None]
